FAERS Safety Report 6138362-X (Version None)
Quarter: 2009Q1

REPORT INFORMATION
  Report Type: 
  Country: None (occurrence: None)
  Receive Date: 20090331
  Receipt Date: 20090320
  Transmission Date: 20090719
  Serious: Yes (Hospitalization)
  Sender: FDA-Public Use
  Company Number: FR-PFIZER INC-2009187823

PATIENT

DRUGS (8)
  1. ALDACTONE [Suspect]
     Indication: HYPERTENSION
     Dosage: UNK
     Dates: start: 20070615, end: 20080716
  2. PRETERAX [Suspect]
     Indication: HYPERTENSION
     Dates: start: 20070615, end: 20080710
  3. AMARYL [Concomitant]
     Dosage: UNK
  4. ATARAX [Concomitant]
     Dosage: UNK
  5. DITROPAN [Concomitant]
     Dosage: UNK
  6. RANIPLEX [Concomitant]
  7. LEXOMIL [Concomitant]
     Dosage: UNK
  8. DAFALGAN [Concomitant]
     Dosage: UNK

REACTIONS (2)
  - LICHENOID KERATOSIS [None]
  - PRURITUS [None]
